FAERS Safety Report 11350913 (Version 1)
Quarter: 2015Q3

REPORT INFORMATION
  Report Type: Spontaneous
  Country: US (occurrence: US)
  Receive Date: 20150807
  Receipt Date: 20150807
  Transmission Date: 20151125
  Serious: No
  Sender: FDA-Public Use
  Company Number: US-JNJFOC-20150219370

PATIENT
  Age: 41 Year
  Sex: Female
  Weight: 68.04 kg

DRUGS (10)
  1. SIMVASTATIN. [Concomitant]
     Active Substance: SIMVASTATIN
     Indication: BLOOD CHOLESTEROL INCREASED
     Dosage: 1+ YEARS
     Route: 065
  2. NATURES BOUNTY HAIR SKIN AND NAILS [Concomitant]
     Indication: SKIN DISORDER
     Dosage: 1 WEEK
     Route: 065
  3. ALL OTHER THERAPEUTIC PRODUCT [Concomitant]
     Active Substance: UNSPECIFIED INGREDIENT
     Indication: SKIN DISORDER
     Dosage: 2 MONTHS
  4. NATURES BOUNTY HAIR SKIN AND NAILS [Concomitant]
     Indication: HAIR DISORDER
     Dosage: 1 WEEK
     Route: 065
  5. WOMENS ROGAINE UNSCENTED [Suspect]
     Active Substance: MINOXIDIL
     Indication: ALOPECIA
     Dosage: HALF CAPFUL
     Route: 061
     Dates: start: 20150215
  6. LISINOPRIL. [Concomitant]
     Active Substance: LISINOPRIL
     Indication: HYPERTENSION
     Dosage: 1+ YEARS
     Route: 065
  7. NATURES BOUNTY HAIR SKIN AND NAILS [Concomitant]
     Indication: NAIL DISORDER
     Dosage: 1 WEEK
     Route: 065
  8. ALL OTHER THERAPEUTIC PRODUCT [Concomitant]
     Active Substance: UNSPECIFIED INGREDIENT
     Indication: NAIL DISORDER
     Dosage: 2 MONTHS
  9. WOMENS ROGAINE UNSCENTED [Suspect]
     Active Substance: MINOXIDIL
     Route: 061
  10. ALL OTHER THERAPEUTIC PRODUCT [Concomitant]
     Active Substance: UNSPECIFIED INGREDIENT
     Indication: HAIR DISORDER
     Dosage: 2 MONTHS

REACTIONS (2)
  - Headache [Recovering/Resolving]
  - Erythema [Recovering/Resolving]

NARRATIVE: CASE EVENT DATE: 20150215
